FAERS Safety Report 12634641 (Version 5)
Quarter: 2017Q2

REPORT INFORMATION
  Report Type: Spontaneous
  Country: US (occurrence: US)
  Receive Date: 20160809
  Receipt Date: 20170411
  Transmission Date: 20170830
  Serious: Yes (Hospitalization, Other)
  Sender: FDA-Public Use
  Company Number: US-009507513-1608USA001880

PATIENT
  Sex: Female
  Weight: 90.25 kg

DRUGS (5)
  1. NUVARING [Suspect]
     Active Substance: ETHINYL ESTRADIOL\ETONOGESTREL
     Indication: ANALGESIC THERAPY
     Dosage: 1 PV (PER VAGINA) FOR 3 WKS OF MONTH. MAY USE CONTINUOUSLY
     Route: 067
     Dates: start: 201305
  2. NUVARING [Suspect]
     Active Substance: ETHINYL ESTRADIOL\ETONOGESTREL
     Indication: HORMONE LEVEL ABNORMAL
     Dosage: UNK
     Route: 067
     Dates: start: 2012, end: 20140809
  3. NUVARING [Suspect]
     Active Substance: ETHINYL ESTRADIOL\ETONOGESTREL
     Indication: DYSMENORRHOEA
  4. NUVARING [Suspect]
     Active Substance: ETHINYL ESTRADIOL\ETONOGESTREL
     Indication: CONTRACEPTION
     Dosage: INSERT 1 RING FOR 3 WKS AND OUT FOR 1 WK
     Route: 067
     Dates: start: 20140512, end: 20140809
  5. ALBUTEROL. [Concomitant]
     Active Substance: ALBUTEROL
     Indication: ASTHMA
     Dosage: UNK, UNKNOWN
     Route: 055
     Dates: start: 2004

REACTIONS (16)
  - Cerebral venous thrombosis [Recovered/Resolved]
  - Pelvic pain [Unknown]
  - Hypoaesthesia [Recovered/Resolved]
  - Migraine [Recovering/Resolving]
  - Seizure [Unknown]
  - Off label use [Recovered/Resolved]
  - Off label use [Unknown]
  - Papilloma viral infection [Unknown]
  - Gonorrhoea [Unknown]
  - Cervical dysplasia [Not Recovered/Not Resolved]
  - Hemiparesis [Recovered/Resolved]
  - Abdominal pain [Unknown]
  - Gastrooesophageal reflux disease [Unknown]
  - Cervical dysplasia [Unknown]
  - Photophobia [Unknown]
  - Dyspareunia [Not Recovered/Not Resolved]

NARRATIVE: CASE EVENT DATE: 201210
